FAERS Safety Report 9952819 (Version 2)
Quarter: 2014Q1

REPORT INFORMATION
  Report Type: Report from Study
  Country: US (occurrence: US)
  Receive Date: 20140304
  Receipt Date: 20140304
  Transmission Date: 20141002
  Serious: Yes (Other)
  Sender: FDA-Public Use
  Company Number: US-ABBVIE-13P-163-1062145-00

PATIENT
  Age: 48 Year
  Sex: Female
  Weight: 120.31 kg

DRUGS (2)
  1. HUMIRA [Suspect]
     Indication: RHEUMATOID ARTHRITIS
     Route: 058
     Dates: start: 20121119
  2. HUMIRA [Suspect]
     Dates: start: 2013

REACTIONS (2)
  - Sinus operation [Recovered/Resolved]
  - Sinusitis [Recovered/Resolved]
